FAERS Safety Report 26196073 (Version 1)
Quarter: 2025Q4

REPORT INFORMATION
  Report Type: Spontaneous
  Country: EU (occurrence: EU)
  Receive Date: 20251224
  Receipt Date: 20251224
  Transmission Date: 20260117
  Serious: Yes (Other)
  Sender: RANBAXY
  Company Number: EU-SUN PHARMACEUTICAL INDUSTRIES LTD-2025RR-543300

PATIENT
  Age: 84 Year
  Sex: Male

DRUGS (4)
  1. LEVETIRACETAM [Suspect]
     Active Substance: LEVETIRACETAM
     Indication: Encephalopathy
     Dosage: 500 MILLIGRAM, BID
     Route: 065
     Dates: start: 202201
  2. LEVETIRACETAM [Suspect]
     Active Substance: LEVETIRACETAM
     Dosage: UNK
     Route: 065
     Dates: start: 202501, end: 202502
  3. PANTOPRAZOLE [Suspect]
     Active Substance: PANTOPRAZOLE
     Indication: Product used for unknown indication
     Dosage: 20 MILLIGRAM
     Route: 065
  4. PANTOPRAZOLE [Suspect]
     Active Substance: PANTOPRAZOLE
     Dosage: 40 MILLIGRAM
     Route: 065
     Dates: start: 202203, end: 202502

REACTIONS (5)
  - Encephalopathy [Recovered/Resolved]
  - Dysphagia [Recovered/Resolved]
  - Gastrointestinal disorder [Recovered/Resolved]
  - Electrolyte imbalance [Recovered/Resolved]
  - Neurological symptom [Recovered/Resolved]

NARRATIVE: CASE EVENT DATE: 20250101
